FAERS Safety Report 6778850-6 (Version None)
Quarter: 2010Q2

REPORT INFORMATION
  Report Type: 
  Country: None (occurrence: None)
  Receive Date: 20100618
  Receipt Date: 20100609
  Transmission Date: 20101027
  Serious: Yes (Hospitalization)
  Sender: FDA-Public Use
  Company Number: FR-JNJFOC-20100603104

PATIENT
  Sex: Female

DRUGS (9)
  1. SPORANOX [Suspect]
     Indication: PROPHYLAXIS
     Route: 048
  2. CARDENSIEL [Suspect]
     Indication: HYPERTENSION
     Route: 048
  3. CARDENSIEL [Suspect]
     Route: 048
  4. CARDENSIEL [Suspect]
     Route: 048
  5. ESIDRIX [Concomitant]
  6. TRIATEC [Concomitant]
  7. LASIX [Concomitant]
  8. KARDEGIC [Concomitant]
  9. FLUINDIONE [Concomitant]

REACTIONS (3)
  - BRONCHITIS [None]
  - CARDIAC FAILURE [None]
  - RESPIRATORY FAILURE [None]
